FAERS Safety Report 10394721 (Version 1)
Quarter: 2014Q3

REPORT INFORMATION
  Report Type: Spontaneous
  Country: US (occurrence: US)
  Receive Date: 20140820
  Receipt Date: 20140820
  Transmission Date: 20150326
  Serious: Yes (Other)
  Sender: FDA-Public Use
  Company Number: US-ROCHE-1450708

PATIENT
  Sex: Female
  Weight: 135.43 kg

DRUGS (2)
  1. XELODA [Suspect]
     Active Substance: CAPECITABINE
     Indication: BREAST CANCER
     Route: 048
     Dates: start: 20140420, end: 20140721
  2. TYKERB [Suspect]
     Active Substance: LAPATINIB DITOSYLATE
     Indication: BREAST CANCER
     Route: 048
     Dates: start: 201404, end: 20140721

REACTIONS (9)
  - Hyperaesthesia [Unknown]
  - Photosensitivity reaction [Unknown]
  - Disease progression [Unknown]
  - Vaginal haemorrhage [Recovered/Resolved]
  - Lung disorder [Unknown]
  - Brain injury [Unknown]
  - Menopausal symptoms [Unknown]
  - Urticaria [Unknown]
  - Endocrine disorder [Unknown]
